FAERS Safety Report 7362448-5 (Version None)
Quarter: 2011Q1

REPORT INFORMATION
  Report Type: 
  Country: None (occurrence: None)
  Receive Date: 20110318
  Receipt Date: 20110310
  Transmission Date: 20110831
  Serious: Yes (Hospitalization, Other)
  Sender: FDA-Public Use
  Company Number: JP-AMGEN-JPNCT2011013772

PATIENT
  Age: 63 Year
  Sex: Male
  Weight: 48 kg

DRUGS (3)
  1. RESTAMIN KOWA [Concomitant]
     Route: 048
  2. IRINOTECAN HYDROCHLORIDE [Concomitant]
     Indication: COLORECTAL CANCER
     Dosage: 220 MG, Q2WK
     Route: 041
     Dates: start: 20110119
  3. PANITUMUMAB [Suspect]
     Indication: COLORECTAL CANCER
     Dosage: 300 MG, Q2WK
     Route: 041
     Dates: start: 20110119

REACTIONS (2)
  - ILEUS [None]
  - DERMATITIS ACNEIFORM [None]
